FAERS Safety Report 8247172-9 (Version None)
Quarter: 2012Q1

REPORT INFORMATION
  Report Type: 
  Country: None (occurrence: None)
  Receive Date: 20120330
  Receipt Date: 20120323
  Transmission Date: 20120608
  Serious: Yes (Death, Other)
  Sender: FDA-Public Use
  Company Number: US-ELI_LILLY_AND_COMPANY-US201202002746

PATIENT
  Sex: Female
  Weight: 71.8 kg

DRUGS (11)
  1. MORPHINE SULFATE [Concomitant]
     Dosage: UNK, UNKNOWN
  2. GEMZAR [Suspect]
     Indication: URETERIC CANCER
     Dosage: 1953 MG, ON DAY 1, 8,AND 15 EVERY 28 DAYS
     Dates: start: 20101214, end: 20110323
  3. COMPAZINE [Concomitant]
     Dosage: UNK, UNKNOWN
  4. PROCHLORPERAZINE MALEATE [Concomitant]
     Dosage: UNK, UNKNOWN
  5. PEGFILGRASTIM [Concomitant]
  6. OXYCODONE HCL [Concomitant]
     Dosage: 15 MG, UNKNOWN
  7. GEMZAR [Suspect]
     Dosage: 1507 MG, ON DAY 1 AND 8 EVERY 28 DAYS
     Dates: start: 20110323, end: 20110330
  8. CISPLATIN [Concomitant]
     Dosage: 73 MG, DAY 1 OF 28 DAY CYCLE
  9. FLUOXETINE [Concomitant]
     Dosage: 40 MG, QD
     Route: 048
     Dates: start: 20111021
  10. DEXAMETHASONE [Concomitant]
     Dosage: 8 MG, QD
  11. OMEPRAZOLE [Concomitant]
     Dosage: 20 MG, QD

REACTIONS (7)
  - ANXIETY [None]
  - NEOPLASM PROGRESSION [None]
  - HOSPICE CARE [None]
  - MALAISE [None]
  - OFF LABEL USE [None]
  - FATIGUE [None]
  - VOMITING [None]
